FAERS Safety Report 23122000 (Version 1)
Quarter: 2023Q4

REPORT INFORMATION
  Report Type: Spontaneous
  Country: CZ (occurrence: CZ)
  Receive Date: 20231030
  Receipt Date: 20231030
  Transmission Date: 20240110
  Serious: Yes (Other)
  Sender: FDA-Public Use
  Company Number: CZ-PMCS-2023000859

PATIENT
  Age: 78 Year
  Sex: Male

DRUGS (6)
  1. HYDROCHLOROTHIAZIDE [Suspect]
     Active Substance: HYDROCHLOROTHIAZIDE
     Indication: Peripheral swelling
     Dosage: UNK
     Route: 065
  2. AMILORIDE [Suspect]
     Active Substance: AMILORIDE
     Indication: Peripheral swelling
     Dosage: UNK
     Route: 065
  3. BISOPROLOL [Suspect]
     Active Substance: BISOPROLOL\BISOPROLOL FUMARATE
     Indication: Hypertension
     Dosage: UNK
     Route: 065
  4. DIOSMIN [Suspect]
     Active Substance: DIOSMIN
     Indication: Peripheral swelling
     Dosage: UNK
     Route: 065
  5. FUROSEMIDE [Suspect]
     Active Substance: FUROSEMIDE
     Indication: Peripheral swelling
     Dosage: 40 MILLIGRAM
     Route: 065
  6. PERINDOPRIL [Concomitant]
     Active Substance: PERINDOPRIL
     Indication: Product used for unknown indication
     Dosage: 10 MILLIGRAM, ONCE A DAY
     Route: 065

REACTIONS (2)
  - Bradycardia [Recovered/Resolved]
  - Drug ineffective [Recovered/Resolved]
